FAERS Safety Report 8424763 (Version 2)
Quarter: 2012Q4

REPORT INFORMATION
  Report Type: Report from Study
  Country: JP (occurrence: JP)
  Receive Date: 20120224
  Receipt Date: 20121101
  Transmission Date: 20130627
  Serious: Yes (Other)
  Sender: FDA-Public Use
  Company Number: JP-JNJFOC-20120209160

PATIENT
  Age: 49 Year
  Sex: Male
  Weight: 71 kg

DRUGS (11)
  1. STELARA [Suspect]
     Indication: PSORIASIS
     Route: 058
     Dates: start: 20120116
  2. DERMOVATE [Concomitant]
     Indication: PSORIASIS
     Route: 061
  3. DERMOVATE [Concomitant]
     Indication: ERYTHRODERMIC PSORIASIS
     Route: 061
  4. OXAROL [Concomitant]
     Indication: PSORIASIS
     Route: 061
  5. OXAROL [Concomitant]
     Indication: ERYTHRODERMIC PSORIASIS
     Route: 061
  6. DERMOVATE [Concomitant]
     Indication: PSORIASIS
     Route: 061
  7. DERMOVATE [Concomitant]
     Indication: ERYTHRODERMIC PSORIASIS
     Route: 061
  8. WHITE PETROLEUM [Concomitant]
     Indication: PSORIASIS
  9. WHITE PETROLEUM [Concomitant]
     Indication: ERYTHRODERMIC PSORIASIS
  10. PROPETO [Concomitant]
     Indication: PSORIASIS
  11. PROPETO [Concomitant]
     Indication: ERYTHRODERMIC PSORIASIS

REACTIONS (1)
  - Glucose tolerance impaired [Recovered/Resolved]
